FAERS Safety Report 26154519 (Version 1)
Quarter: 2025Q4

REPORT INFORMATION
  Report Type: Spontaneous
  Country: US (occurrence: US)
  Receive Date: 20251215
  Receipt Date: 20251215
  Transmission Date: 20260118
  Serious: Yes (Hospitalization)
  Sender: DR REDDYS
  Company Number: US-DRL-USA-USA/2025/12/018903

PATIENT
  Age: 78 Year
  Sex: Female

DRUGS (3)
  1. PEMETREXED [Suspect]
     Active Substance: PEMETREXED
     Indication: Lung adenocarcinoma stage IV
     Dosage: ON TREATMENT FOR SEVEN MONTHS
  2. CARBOPLATIN [Suspect]
     Active Substance: CARBOPLATIN
     Indication: Lung adenocarcinoma stage IV
     Dosage: ON TREATMENT FOR SEVEN MONTHS
  3. PEMBROLIZUMAB [Suspect]
     Active Substance: PEMBROLIZUMAB
     Indication: Lung adenocarcinoma stage IV
     Dosage: ON TREATMENT FOR SEVEN MONTHS

REACTIONS (3)
  - Acute kidney injury [Recovering/Resolving]
  - Norovirus infection [Recovering/Resolving]
  - Diarrhoea [Recovering/Resolving]
